FAERS Safety Report 11694304 (Version 1)
Quarter: 2015Q4

REPORT INFORMATION
  Report Type: Spontaneous
  Country: US (occurrence: US)
  Receive Date: 20151103
  Receipt Date: 20151103
  Transmission Date: 20160304
  Serious: No
  Sender: FDA-Public Use
  Company Number: US-AKRIMAX-TIR-04805

PATIENT
  Age: 65 Year
  Sex: Female
  Weight: 56.3 kg

DRUGS (1)
  1. TIROSINT [Suspect]
     Active Substance: LEVOTHYROXINE SODIUM
     Indication: HYPOTHYROIDISM
     Dosage: ONE 25MCG CAPSULE DAILY
     Route: 048
     Dates: start: 201506

REACTIONS (5)
  - Tremor [Unknown]
  - Flank pain [Unknown]
  - Arthralgia [Unknown]
  - Back pain [Unknown]
  - Confusional state [Unknown]

NARRATIVE: CASE EVENT DATE: 201506
